FAERS Safety Report 4656580-4 (Version None)
Quarter: 2005Q2

REPORT INFORMATION
  Report Type: 
  Country: None (occurrence: None)
  Receive Date: 20050506
  Receipt Date: 20050425
  Transmission Date: 20051028
  Serious: Yes (Other)
  Sender: FDA-Public Use
  Company Number: 2005047208

PATIENT
  Age: 69 Year
  Sex: Male
  Weight: 94 kg

DRUGS (3)
  1. CABERGOLINE [Suspect]
     Indication: PARKINSON'S DISEASE
     Dosage: 6 MG, ORAL
     Route: 048
     Dates: start: 20030101
  2. ENTACAPONE (ENTACAPONE) [Concomitant]
  3. AMANTADINE HCL [Concomitant]

REACTIONS (1)
  - PERICARDIAL EFFUSION [None]
